FAERS Safety Report 4294136-6 (Version None)
Quarter: 2004Q1

REPORT INFORMATION
  Report Type: 
  Country: None (occurrence: None)
  Receive Date: 20040211
  Receipt Date: 20040202
  Transmission Date: 20041129
  Serious: Yes (Other)
  Sender: FDA-Public Use
  Company Number: GB-JNJFOC-20040200371

PATIENT
  Age: 67 Year
  Sex: Male

DRUGS (6)
  1. REMICADE [Suspect]
     Indication: RHEUMATOID ARTHRITIS
     Dosage: INTRAVENOUS
     Route: 042
     Dates: start: 20030415, end: 20030805
  2. HYPOMELLOSE (HYPROMELLOSE) [Concomitant]
  3. NAPROXEN [Concomitant]
  4. METHOTREXATE [Concomitant]
  5. FOLIC ACID [Concomitant]
  6. COPROXAMOL (APOREX) [Concomitant]

REACTIONS (1)
  - CHRONIC OBSTRUCTIVE AIRWAYS DISEASE [None]
